FAERS Safety Report 6931242-9 (Version None)
Quarter: 2010Q3

REPORT INFORMATION
  Report Type: 
  Country: None (occurrence: None)
  Receive Date: 20100816
  Receipt Date: 20100803
  Transmission Date: 20110219
  Serious: Yes (Life-Threatening)
  Sender: FDA-Public Use
  Company Number: AUR-APL-2010-01960

PATIENT
  Age: 43 Year
  Sex: Female
  Weight: 65 kg

DRUGS (3)
  1. MIRTAZAPINE [Suspect]
     Indication: DEPRESSION
     Dosage: 30MG - DAILY - ORAL
     Route: 048
     Dates: start: 20100606
  2. CATAPRESAN [Concomitant]
  3. DIAZEPAM [Concomitant]

REACTIONS (2)
  - ELECTROCARDIOGRAM QT PROLONGED [None]
  - VENTRICULAR TACHYCARDIA [None]
